FAERS Safety Report 9119842 (Version 2)
Quarter: 2013Q2

REPORT INFORMATION
  Report Type: Spontaneous
  Country: AU (occurrence: None)
  Receive Date: 20130130
  Receipt Date: 20130523
  Transmission Date: 20140414
  Serious: Yes (Hospitalization)
  Sender: FDA-Public Use
  Company Number: 2013-01151

PATIENT
  Age: 84 Year
  Sex: Male

DRUGS (11)
  1. SIMVASTATIN [Suspect]
     Indication: PRODUCT USED FOR UNKNOWN INDICATION
     Dosage: 40MG, DAILY
  2. COLCHICINE [Suspect]
     Indication: GOUT
  3. EZETIMIBE [Concomitant]
  4. AMLODIPINE [Concomitant]
  5. IRBESARTAN [Concomitant]
  6. HYDROCHLOROTHIAZIDE [Concomitant]
  7. CLOPIDOGREL [Concomitant]
  8. RABEPRAZOLE [Concomitant]
  9. OXYCODONE [Concomitant]
  10. PREDNISOLONE [Concomitant]
  11. FLUTICASONE/SALMETEROL) (INHALER) [Concomitant]

REACTIONS (7)
  - Gastroenteritis [None]
  - Lactic acidosis [None]
  - Renal failure acute [None]
  - Myopathy [None]
  - Colonic pseudo-obstruction [None]
  - Drug interaction [None]
  - Toxicity to various agents [None]
